FAERS Safety Report 9825784 (Version 1)
Quarter: 2013Q4

REPORT INFORMATION
  Report Type: Spontaneous
  Country: US (occurrence: None)
  Receive Date: 20131028
  Receipt Date: 20131028
  Transmission Date: 20140711
  Serious: Yes (Other)
  Sender: FDA-Public Use
  Company Number: 2013US002212

PATIENT
  Age: 74 Year
  Sex: Female
  Weight: 52 kg

DRUGS (6)
  1. ICLUSIG [Suspect]
     Indication: CHRONIC MYELOID LEUKAEMIA
     Route: 048
     Dates: end: 201308
  2. ATENOLOL [Concomitant]
  3. PREMARIN [Concomitant]
  4. AVAPRO [Concomitant]
  5. DIGESTIVE ENZYMES [Concomitant]
  6. PROBIOTIC [Concomitant]

REACTIONS (3)
  - Amnesia [None]
  - Hypertension [None]
  - Back pain [None]
